FAERS Safety Report 6338276-6 (Version None)
Quarter: 2009Q3

REPORT INFORMATION
  Report Type: 
  Country: None (occurrence: None)
  Receive Date: 20090902
  Receipt Date: 20090828
  Transmission Date: 20100115
  Serious: Yes (Hospitalization)
  Sender: FDA-Public Use
  Company Number: US-WATSON-2009-05150

PATIENT
  Sex: Female

DRUGS (6)
  1. ANDRODERM [Suspect]
     Indication: PREMENSTRUAL SYNDROME
     Dosage: 1 PATCH X 12 HRS A DAY (APPLIES NEW PATCH AFTER 12 HRS)
     Route: 062
     Dates: start: 20090611
  2. ANDRODERM [Suspect]
     Dosage: 1 PATCH, X 12 HRS A DAY (APPLIES NEW PATCH AFTER 12 HRS)
     Route: 062
     Dates: start: 20090410, end: 20090610
  3. ANDRODERM [Suspect]
     Dosage: 1 PATCH, Q 24 HRS
     Route: 062
     Dates: start: 20080801, end: 20081001
  4. YAZ [Concomitant]
     Indication: HORMONE REPLACEMENT THERAPY
     Dosage: 1 TABLET, DAILY
     Route: 048
     Dates: start: 20080801
  5. DHEA [Concomitant]
     Indication: HORMONE REPLACEMENT THERAPY
     Dosage: SUBLINGUAL SPRAY
     Route: 060
  6. ^PAIN MEDS^ [Concomitant]
     Indication: PAIN IN JAW
     Dosage: UNK
     Route: 065

REACTIONS (21)
  - ABDOMINAL PAIN [None]
  - ABNORMAL BEHAVIOUR [None]
  - AGGRESSION [None]
  - AGITATION [None]
  - ANGER [None]
  - APPLICATION SITE BURN [None]
  - APPLICATION SITE IRRITATION [None]
  - APPLICATION SITE PRURITUS [None]
  - APPLICATION SITE RASH [None]
  - APPLICATION SITE SWELLING [None]
  - COLON OPERATION [None]
  - CONDITION AGGRAVATED [None]
  - CRYING [None]
  - DRUG WITHDRAWAL SYNDROME [None]
  - GASTROINTESTINAL DISORDER [None]
  - INSOMNIA [None]
  - MALAISE [None]
  - OVERDOSE [None]
  - SCREAMING [None]
  - SUICIDAL IDEATION [None]
  - THERAPEUTIC RESPONSE UNEXPECTED [None]
